FAERS Safety Report 10144412 (Version 1)
Quarter: 2014Q2

REPORT INFORMATION
  Report Type: Spontaneous
  Country: US (occurrence: US)
  Receive Date: 20140430
  Receipt Date: 20140430
  Transmission Date: 20141212
  Serious: Yes (Other)
  Sender: FDA-Public Use
  Company Number: US-ABBVIE-14P-163-1230500-00

PATIENT
  Sex: Female

DRUGS (5)
  1. HUMIRA [Suspect]
     Indication: PRODUCT USED FOR UNKNOWN INDICATION
     Dosage: FROM PREGNANCY WEEK 1 -30
     Route: 058
  2. HUMIRA [Suspect]
     Dosage: FROM PREGNANCY WEEK 31 - 36
     Route: 058
  3. ZOLOFT [Concomitant]
     Indication: PRODUCT USED FOR UNKNOWN INDICATION
  4. PRENATAL VITAMINS [Concomitant]
     Indication: PRODUCT USED FOR UNKNOWN INDICATION
  5. TYLENOL [Concomitant]
     Indication: PRODUCT USED FOR UNKNOWN INDICATION

REACTIONS (6)
  - Failed induction of labour [Recovered/Resolved]
  - Nausea [Unknown]
  - Arthritis [Unknown]
  - Pre-eclampsia [Recovered/Resolved]
  - Ovarian cyst [Unknown]
  - Iron deficiency [Recovered/Resolved]
